FAERS Safety Report 18461782 (Version 1)
Quarter: 2020Q4

REPORT INFORMATION
  Report Type: Spontaneous
  Country: US (occurrence: US)
  Receive Date: 20201103
  Receipt Date: 20201103
  Transmission Date: 20210114
  Serious: Yes (Hospitalization)
  Sender: FDA-Public Use
  Company Number: None

PATIENT
  Age: 51 Year
  Sex: Female

DRUGS (7)
  1. ICATIBANT [Suspect]
     Active Substance: ICATIBANT ACETATE
     Indication: HEREDITARY ANGIOEDEMA
     Dosage: ?          OTHER FREQUENCY:PRNMAX 3 DOSES 24H;?
     Route: 058
     Dates: start: 20180104
  2. WARFARIN TAB 5MG [Concomitant]
     Dates: start: 20200729
  3. DESVENLAFAX TAB 50MG ER [Concomitant]
     Dates: start: 20200928
  4. ROSUVASTATIN 5 MG [Concomitant]
     Active Substance: ROSUVASTATIN
     Dates: start: 20200916
  5. CLONAZEPAM TAB 0.5MG [Concomitant]
     Dates: start: 20200926
  6. NADOLOL TAB 40MG [Concomitant]
     Dates: start: 20200902
  7. ARIPIPRAZOLE TAB 5MG [Concomitant]
     Dates: start: 20200921

REACTIONS (2)
  - Hospitalisation [None]
  - Unevaluable event [None]

NARRATIVE: CASE EVENT DATE: 20201102
